FAERS Safety Report 9855318 (Version 1)
Quarter: 2014Q1

REPORT INFORMATION
  Report Type: Spontaneous
  Country: US (occurrence: US)
  Receive Date: 20140130
  Receipt Date: 20140130
  Transmission Date: 20141002
  Serious: No
  Sender: FDA-Public Use
  Company Number: US-009507513-1401USA013903

PATIENT
  Sex: 0

DRUGS (1)
  1. NASONEX [Suspect]
     Dosage: STRENGHT: 50 MCG 1 STANDARD DOSE OF 17
     Route: 045

REACTIONS (3)
  - Intercepted medication error [Unknown]
  - Product container issue [Unknown]
  - No adverse event [Unknown]
